FAERS Safety Report 6504874-X (Version None)
Quarter: 2009Q4

REPORT INFORMATION
  Report Type: 
  Country: None (occurrence: None)
  Receive Date: 20091218
  Receipt Date: 20091210
  Transmission Date: 20100525
  Serious: Yes (Death, Other)
  Sender: FDA-Public Use
  Company Number: GB-ROCHE-660414

PATIENT
  Age: 73 Year
  Sex: Female

DRUGS (6)
  1. TAMIFLU [Suspect]
     Indication: H1N1 INFLUENZA
     Dosage: PATIENT RECEIVED SINGLE DOSE.
     Route: 065
     Dates: start: 20090722
  2. VALSARTAN [Concomitant]
     Indication: HYPERTENSION
  3. LANSOPRAZOLE [Concomitant]
  4. FLUOROURACIL [Concomitant]
     Dosage: REPORTED THAT THE PATIENT HAD TAKEN 5FU NEOADJUVANT CHEMO
  5. FLUOROURACIL [Concomitant]
     Dosage: DOSE: 1 G/M2 DAY1-4.
     Dates: start: 20090702
  6. CISPLATIN [Concomitant]
     Dates: start: 20090702

REACTIONS (2)
  - DEHYDRATION [None]
  - VOMITING [None]
